FAERS Safety Report 7127872-4 (Version None)
Quarter: 2010Q4

REPORT INFORMATION
  Report Type: 
  Country: None (occurrence: None)
  Receive Date: 20101029
  Receipt Date: 20100819
  Transmission Date: 20110411
  Serious: No
  Sender: FDA-Public Use
  Company Number: RU-003487

PATIENT
  Sex: Male
  Weight: 102 kg

DRUGS (4)
  1. FIRMAGON [Suspect]
     Indication: PROSTATE CANCER
     Dosage: (240 MG  SUBCUTANEOUS), ( SUBCUTANEOUS),(480 MG SUBCUTANEOUS)
     Route: 058
     Dates: start: 20100112, end: 20100112
  2. FIRMAGON [Suspect]
     Indication: PROSTATE CANCER
     Dosage: (240 MG  SUBCUTANEOUS), ( SUBCUTANEOUS),(480 MG SUBCUTANEOUS)
     Route: 058
     Dates: start: 20100729, end: 20100729
  3. FIRMAGON [Suspect]
     Indication: PROSTATE CANCER
     Dosage: (240 MG  SUBCUTANEOUS), ( SUBCUTANEOUS),(480 MG SUBCUTANEOUS)
     Route: 058
     Dates: start: 20100216
  4. ENALAPRIL [Concomitant]

REACTIONS (2)
  - EXPIRED DRUG ADMINISTERED [None]
  - NO ADVERSE EVENT [None]
